FAERS Safety Report 10802687 (Version 5)
Quarter: 2018Q3

REPORT INFORMATION
  Report Type: Spontaneous
  Country: JP (occurrence: JP)
  Receive Date: 20150217
  Receipt Date: 20180906
  Transmission Date: 20181010
  Serious: Yes (Other)
  Sender: FDA-Public Use
  Company Number: JP-SHIRE-JP201501203

PATIENT

DRUGS (1)
  1. FOSRENOL [Suspect]
     Active Substance: LANTHANUM CARBONATE
     Indication: HYPERPHOSPHATAEMIA
     Dosage: 250 MG, 3X/DAY:TID
     Route: 048
     Dates: start: 20091105

REACTIONS (4)
  - Medication residue present [Unknown]
  - Gastric polyps [Recovered/Resolved]
  - Abdominal discomfort [Unknown]
  - Oedema mucosal [Unknown]

NARRATIVE: CASE EVENT DATE: 201103
